FAERS Safety Report 4290629-6 (Version None)
Quarter: 2004Q1

REPORT INFORMATION
  Report Type: 
  Country: None (occurrence: None)
  Receive Date: 20040209
  Receipt Date: 20040127
  Transmission Date: 20041129
  Serious: Yes (Hospitalization)
  Sender: FDA-Public Use
  Company Number: GBR-2004-0000879

PATIENT
  Age: 38 Year
  Sex: Female

DRUGS (4)
  1. MORPHINE SULFATE [Suspect]
     Dates: end: 20031207
  2. ACETAMINOPHEN [Suspect]
     Dosage: 4 GRAM, DAILY, ORAL
     Route: 048
     Dates: end: 20031207
  3. AMITRIPTYLINE HYDROCHLORIDE [Suspect]
     Dosage: ORAL
     Route: 048
     Dates: end: 20031207
  4. NEURONTIN [Suspect]
     Dosage: ORAL
     Route: 048
     Dates: end: 20031207

REACTIONS (2)
  - HEPATIC FAILURE [None]
  - HEPATITIS FULMINANT [None]
